FAERS Safety Report 7980471-4 (Version None)
Quarter: 2011Q4

REPORT INFORMATION
  Report Type: 
  Country: None (occurrence: None)
  Receive Date: 20111214
  Receipt Date: 20111212
  Transmission Date: 20120403
  Serious: Yes (Hospitalization)
  Sender: FDA-Public Use
  Company Number: US-GLAXOSMITHKLINE-A0957714A

PATIENT
  Sex: Male

DRUGS (2)
  1. AVANDIA [Suspect]
     Indication: TYPE 2 DIABETES MELLITUS
     Dosage: 4MG UNKNOWN
  2. ALCOHOL [Suspect]

REACTIONS (3)
  - TREATMENT NONCOMPLIANCE [None]
  - TRANSIENT ISCHAEMIC ATTACK [None]
  - ALCOHOL ABUSE [None]
